FAERS Safety Report 20854534 (Version 1)
Quarter: 2022Q2

REPORT INFORMATION
  Report Type: Spontaneous
  Country: US (occurrence: None)
  Receive Date: 20220519
  Receipt Date: 20220519
  Transmission Date: 20220721
  Serious: Yes (Hospitalization)
  Sender: FDA-Public Use
  Company Number: None

PATIENT
  Sex: Female

DRUGS (1)
  1. DALFAMPRIDINE [Suspect]
     Active Substance: DALFAMPRIDINE
     Indication: Multiple sclerosis
     Dosage: OTHER FREQUENCY : EVERY12HOURS;?
     Route: 048
     Dates: start: 202201

REACTIONS (7)
  - Condition aggravated [None]
  - Hemiplegia [None]
  - Incontinence [None]
  - Immobile [None]
  - Blood glucose increased [None]
  - Decreased interest [None]
  - Anhedonia [None]
